FAERS Safety Report 21033869 (Version 1)
Quarter: 2022Q2

REPORT INFORMATION
  Report Type: Spontaneous
  Country: US (occurrence: None)
  Receive Date: 20220630
  Receipt Date: 20220630
  Transmission Date: 20220721
  Serious: Yes (Hospitalization)
  Sender: FDA-Public Use
  Company Number: None

PATIENT
  Age: 53 Year
  Sex: Female
  Weight: 90 kg

DRUGS (8)
  1. CONTRAVE [Suspect]
     Active Substance: BUPROPION HYDROCHLORIDE\NALTREXONE HYDROCHLORIDE
     Indication: Weight decreased
     Dosage: OTHER FREQUENCY : 1 FOR7 DAYS,THEN2;?OTHER ROUTE : MOUTH;?
     Route: 048
     Dates: start: 20220616, end: 20220628
  2. OXYCODONE [Concomitant]
     Active Substance: OXYCODONE
  3. ACETAMINOPHEN [Concomitant]
     Active Substance: ACETAMINOPHEN
  4. HERBALS\TURMERIC [Concomitant]
     Active Substance: HERBALS\TURMERIC
  5. black elderberry [Concomitant]
  6. MULTI-VITAMIN [Concomitant]
     Active Substance: .ALPHA.-TOCOPHEROL ACETATE, DL-\ASCORBIC ACID\CYANOCOBALAMIN\FLUORIDE ION\FOLIC ACID\NIACIN\PYRIDOXI
  7. MACUGUARD OCULAR SUPPORT [Concomitant]
  8. fiberwell gummies [Concomitant]

REACTIONS (23)
  - Mania [None]
  - Tachyphrenia [None]
  - Irritability [None]
  - Hypertension [None]
  - Headache [None]
  - Chest discomfort [None]
  - Agitation [None]
  - Anxiety [None]
  - Eye irritation [None]
  - Abdominal pain upper [None]
  - Insomnia [None]
  - Hot flush [None]
  - Dry mouth [None]
  - Vision blurred [None]
  - Micturition urgency [None]
  - Dysuria [None]
  - Hyperhidrosis [None]
  - Rash [None]
  - Feeling hot [None]
  - Blood pressure increased [None]
  - Ear pain [None]
  - Electrocardiogram T wave inversion [None]
  - Chest pain [None]

NARRATIVE: CASE EVENT DATE: 20220628
